FAERS Safety Report 9838144 (Version 1)
Quarter: 2013Q4

REPORT INFORMATION
  Report Type: Spontaneous
  Country: US (occurrence: None)
  Receive Date: 20131205
  Receipt Date: 20131205
  Transmission Date: 20140711
  Serious: Yes (Other)
  Sender: FDA-Public Use
  Company Number: 163-POMAL-13101980

PATIENT
  Age: 80 Year
  Sex: Female

DRUGS (6)
  1. POMALYST [Suspect]
     Indication: PLASMA CELL MYELOMA
     Route: 048
     Dates: start: 20130905
  2. DEXAMETHASONE (DEXAMETHASONE [Concomitant]
  3. SYNTHROID (LEVOTHYROXINE SODIUM) [Concomitant]
  4. ASPIRIN 9ACETYLSALCYLIC ACID) [Concomitant]
  5. VALTREX (VALCICLOVIR HYDROCHLORIDE) [Concomitant]
  6. CARAFATE (SUCRALFATE) [Concomitant]

REACTIONS (1)
  - Gastrointestinal infection [None]
